FAERS Safety Report 6968619-1 (Version None)
Quarter: 2010Q3

REPORT INFORMATION
  Report Type: 
  Country: None (occurrence: None)
  Receive Date: 20100902
  Receipt Date: 20100825
  Transmission Date: 20110219
  Serious: Yes (Other)
  Sender: FDA-Public Use
  Company Number: PI-04988

PATIENT
  Age: 45 Year
  Sex: Female

DRUGS (1)
  1. CHLORAPREP ONE-STEP [Suspect]
     Indication: PREOPERATIVE CARE
     Dosage: 1.75 ML, TWICE, TOPICAL
     Route: 061
     Dates: start: 20100825

REACTIONS (5)
  - APPLICATION SITE IRRITATION [None]
  - BURNING SENSATION [None]
  - CHEST DISCOMFORT [None]
  - DIZZINESS [None]
  - URTICARIA [None]
